FAERS Safety Report 5078091-7 (Version None)
Quarter: 2006Q3

REPORT INFORMATION
  Report Type: 
  Country: None (occurrence: None)
  Receive Date: 20060811
  Receipt Date: 20060707
  Transmission Date: 20061208
  Serious: Yes (Hospitalization, Other)
  Sender: FDA-Public Use
  Company Number: US-BAYER-200612891BCC

PATIENT
  Age: 55 Year
  Sex: Female
  Weight: 73 kg

DRUGS (5)
  1. ALEVE (CAPLET) [Suspect]
     Indication: BACK PAIN
     Dosage: UNIT DOSE: 220 MG
     Route: 048
  2. ALEVE (CAPLET) [Suspect]
     Dosage: UNIT DOSE: 220 MG
     Route: 048
  3. WALMART ASPIRIN [Concomitant]
  4. CALCIUM GLUCONATE [Concomitant]
  5. LIPITOR [Concomitant]

REACTIONS (2)
  - HYPERSENSITIVITY [None]
  - SHOCK [None]
